FAERS Safety Report 23985793 (Version 1)
Quarter: 2024Q2

REPORT INFORMATION
  Report Type: Spontaneous
  Country: US (occurrence: US)
  Receive Date: 20240618
  Receipt Date: 20240618
  Transmission Date: 20240716
  Serious: No
  Sender: FDA-Public Use
  Company Number: US-Calliditas-2024CAL01013

PATIENT
  Age: 44 Year
  Sex: Female
  Weight: 82.5 kg

DRUGS (1)
  1. TARPEYO [Suspect]
     Active Substance: BUDESONIDE
     Indication: Renal disorder
     Route: 048
     Dates: start: 20240311

REACTIONS (4)
  - Energy increased [Unknown]
  - Sensory overload [Unknown]
  - Dyspnoea [Unknown]
  - Off label use [Unknown]
